FAERS Safety Report 5351300-2 (Version None)
Quarter: 2007Q2

REPORT INFORMATION
  Report Type: 
  Country: None (occurrence: None)
  Receive Date: 20070608
  Receipt Date: 20070531
  Transmission Date: 20071010
  Serious: No
  Sender: FDA-Public Use
  Company Number: US-ASTRAZENECA-2006UW07922

PATIENT
  Age: 39 Year
  Sex: Male
  Weight: 72.7 kg

DRUGS (4)
  1. SEROQUEL [Suspect]
     Indication: DEPRESSION
     Dosage: 300 MG, 600 MG
     Route: 048
     Dates: start: 19970101, end: 19980101
  2. SEROQUEL [Suspect]
     Dosage: 300 MG, 600 MG
     Route: 048
     Dates: start: 19990101, end: 20030101
  3. REMERON [Concomitant]
  4. METHADONE HCL [Concomitant]

REACTIONS (1)
  - HYPERGLYCAEMIA [None]
